FAERS Safety Report 6808923-0 (Version None)
Quarter: 2010Q2

REPORT INFORMATION
  Report Type: 
  Country: None (occurrence: None)
  Receive Date: 20100630
  Receipt Date: 20091029
  Transmission Date: 20101027
  Serious: No
  Sender: FDA-Public Use
  Company Number: US-PFIZER INC-2009270447

PATIENT
  Sex: Female

DRUGS (3)
  1. BEXTRA [Suspect]
  2. CELEBREX [Suspect]
  3. MOBIC [Suspect]

REACTIONS (2)
  - DRUG INEFFECTIVE [None]
  - PAIN [None]
